FAERS Safety Report 9286288 (Version 2)
Quarter: 2013Q2

REPORT INFORMATION
  Report Type: Spontaneous
  Country: FR (occurrence: None)
  Receive Date: 20130508
  Receipt Date: 20130508
  Transmission Date: 20140414
  Serious: Yes (Hospitalization)
  Sender: FDA-Public Use
  Company Number: AUR-APL-2013-03780

PATIENT
  Age: 57 Year
  Sex: Male

DRUGS (13)
  1. PERINDOPRIL (PERINDOPRIL) [Suspect]
     Indication: PRODUCT USED FOR UNKNOWN INDICATION
     Route: 048
     Dates: start: 20121221
  2. DEPAMIDE (VALPROMIDE) [Suspect]
     Indication: PRODUCT USED FOR UNKNOWN INDICATION
     Dosage: 300 MG, 2 IN 1 D
     Route: 048
     Dates: start: 20130114, end: 20130207
  3. TAHOR [Suspect]
     Indication: PRODUCT USED FOR UNKNOWN INDICATION
     Dosage: 40 MG, 1 IN 1 D
     Route: 048
     Dates: end: 20130214
  4. KEPPRA (LEVETIRACETAM) [Suspect]
     Indication: PRODUCT USED FOR UNKNOWN INDICATION
     Dosage: 750 MG, 2 IN 1 D
     Route: 048
  5. AVLOCARDYL (PROPRANOLOL) [Concomitant]
  6. CLOPIDOGREL (CLOPIDOGREL) [Concomitant]
  7. DAFALGAN (PARACETAMOL) [Concomitant]
  8. FOLIC ACID (FOLIC ACID) [Concomitant]
  9. LOXEN LP50 (NICARDIPINE HYDROCHLORIDE) [Concomitant]
  10. MOVICOL (NULYTELY   /01053601/) [Concomitant]
  11. RISPERDAL (RISPERIDONE) [Concomitant]
  12. VITAMIN B12 (CYANOCOBALAMIN) [Concomitant]
  13. SERESTA (OXAZEPAM) [Concomitant]

REACTIONS (3)
  - Pancytopenia [None]
  - Vitamin B12 deficiency [None]
  - Pancreatitis [None]
